FAERS Safety Report 23152349 (Version 3)
Quarter: 2023Q4

REPORT INFORMATION
  Report Type: Report from Study
  Country: ES (occurrence: ES)
  Receive Date: 20231107
  Receipt Date: 20231226
  Transmission Date: 20240110
  Serious: Yes (Hospitalization)
  Sender: FDA-Public Use
  Company Number: ES-ABBVIE-5451221

PATIENT
  Age: 72 Year
  Sex: Male
  Weight: 80 kg

DRUGS (2)
  1. CARBIDOPA\LEVODOPA [Suspect]
     Active Substance: CARBIDOPA\LEVODOPA
     Indication: Parkinson^s disease
     Dosage: REDUCED THE MORNING DOSE BY HALF
     Route: 050
     Dates: start: 20170519, end: 2023
  2. CARBIDOPA\LEVODOPA [Suspect]
     Active Substance: CARBIDOPA\LEVODOPA
     Dosage: REDUCED THE MORNING DOSE BY HALF
     Route: 050
     Dates: start: 2023

REACTIONS (13)
  - Pyrexia [Recovering/Resolving]
  - Hyperhidrosis [Not Recovered/Not Resolved]
  - Escherichia infection [Recovered/Resolved]
  - Abscess neck [Recovered/Resolved]
  - Lymphadenopathy [Unknown]
  - Urinary tract infection [Not Recovered/Not Resolved]
  - Dyskinesia [Recovering/Resolving]
  - Unevaluable event [Not Recovered/Not Resolved]
  - Dermal cyst [Unknown]
  - Weight decreased [Not Recovered/Not Resolved]
  - Stoma site infection [Recovered/Resolved]
  - Infected bite [Unknown]
  - Osteomyelitis bacterial [Unknown]

NARRATIVE: CASE EVENT DATE: 20170501
